FAERS Safety Report 6278246-X (Version None)
Quarter: 2009Q3

REPORT INFORMATION
  Report Type: 
  Country: None (occurrence: None)
  Receive Date: 20090722
  Receipt Date: 20090711
  Transmission Date: 20100115
  Serious: Yes (Other)
  Sender: FDA-Public Use
  Company Number: DE-MYLANLABS-2009S1012294

PATIENT
  Age: 20 Month
  Sex: Female
  Weight: 10 kg

DRUGS (4)
  1. SIMVADURA [Suspect]
     Indication: ACCIDENTAL EXPOSURE
     Route: 048
     Dates: start: 20090711, end: 20090711
  2. ACETYLSALICYLIC ACID [Suspect]
     Indication: ACCIDENTAL EXPOSURE
     Route: 048
     Dates: start: 20090711, end: 20090711
  3. METFORMIN HCL [Suspect]
     Indication: ACCIDENTAL EXPOSURE
     Route: 048
     Dates: start: 20090711, end: 20090711
  4. VOTUM /01635402/ [Suspect]
     Indication: ACCIDENTAL EXPOSURE
     Route: 048
     Dates: start: 20090711, end: 20090711

REACTIONS (1)
  - ACCIDENTAL DRUG INTAKE BY CHILD [None]
